FAERS Safety Report 18792399 (Version 1)
Quarter: 2021Q1

REPORT INFORMATION
  Report Type: Report from Study
  Country: None (occurrence: ES)
  Receive Date: 20210127
  Receipt Date: 20210127
  Transmission Date: 20210419
  Serious: Yes (Other)
  Sender: FDA-Public Use
  Company Number: ES-ABBVIE-20K-144-3711423-00

PATIENT
  Age: 70 Year
  Sex: Female
  Weight: 54 kg

DRUGS (2)
  1. DUODOPA [Suspect]
     Active Substance: CARBIDOPA\LEVODOPA
  2. DUODOPA [Suspect]
     Active Substance: CARBIDOPA\LEVODOPA
     Indication: PARKINSON^S DISEASE
     Dosage: MORNING DOSE 4; CONTINUOUS DOSE 1.2; EXTRA DOSE 1, 16 HOURS A DAY
     Route: 050
     Dates: start: 20150429

REACTIONS (13)
  - Secretion discharge [Not Recovered/Not Resolved]
  - Stoma site haemorrhage [Recovered/Resolved]
  - Stoma site haemorrhage [Recovered/Resolved]
  - Stoma site discharge [Unknown]
  - Application site fissure [Recovered/Resolved]
  - Device deployment issue [Unknown]
  - Stoma site haemorrhage [Recovered/Resolved]
  - Stoma site haemorrhage [Not Recovered/Not Resolved]
  - Embedded device [Unknown]
  - Stoma site irritation [Unknown]
  - Embedded device [Recovered/Resolved]
  - Stoma site erythema [Recovered/Resolved]
  - Gastrointestinal wall thickening [Not Recovered/Not Resolved]

NARRATIVE: CASE EVENT DATE: 2020
